FAERS Safety Report 12605212 (Version 2)
Quarter: 2016Q3

REPORT INFORMATION
  Report Type: Spontaneous
  Country: US (occurrence: US)
  Receive Date: 20160729
  Receipt Date: 20160802
  Transmission Date: 20161109
  Serious: No
  Sender: FDA-Public Use
  Company Number: US-AMGEN-USASP2016097478

PATIENT
  Age: 54 Year
  Sex: Male

DRUGS (7)
  1. METHOTREXATE. [Concomitant]
     Active Substance: METHOTREXATE
     Dosage: 2.5 MG, UNK
  2. DESONIDE. [Concomitant]
     Active Substance: DESONIDE
     Dosage: UNK
  3. TRIAMCINOLON [Concomitant]
     Dosage: UNK
  4. PAROXETINE HCL [Concomitant]
     Active Substance: PAROXETINE HYDROCHLORIDE
     Dosage: UNK
  5. HUMIRA [Concomitant]
     Active Substance: ADALIMUMAB
     Indication: PSORIASIS
     Dosage: UNK
  6. ENBREL [Suspect]
     Active Substance: ETANERCEPT
     Indication: PRODUCT USED FOR UNKNOWN INDICATION
     Dosage: 50 MG, 2 TIMES/WK (SPACING THE INJECTIONS THREE OR FOUR DAYS APART FOR THREE MONTHS)
     Route: 058
     Dates: start: 201606, end: 20160707
  7. LOSARTAN/HCT [Concomitant]
     Active Substance: HYDROCHLOROTHIAZIDE\LOSARTAN POTASSIUM
     Dosage: 50-12.5 MG, UNK

REACTIONS (6)
  - Influenza like illness [Unknown]
  - Depression [Unknown]
  - Psoriasis [Unknown]
  - Diarrhoea [Unknown]
  - Injection site pain [Unknown]
  - Asthenia [Unknown]

NARRATIVE: CASE EVENT DATE: 201606
